FAERS Safety Report 6849251-7 (Version None)
Quarter: 2010Q3

REPORT INFORMATION
  Report Type: 
  Country: None (occurrence: None)
  Receive Date: 20100716
  Receipt Date: 20071217
  Transmission Date: 20110219
  Serious: Yes (Hospitalization, Other)
  Sender: FDA-Public Use
  Company Number: US-PFIZER INC-2007080793

PATIENT
  Sex: Female

DRUGS (10)
  1. CHANTIX [Suspect]
     Indication: SMOKING CESSATION THERAPY
     Route: 048
  2. LYRICA [Concomitant]
  3. INSULIN [Concomitant]
  4. LASIX [Concomitant]
  5. RESTORIL [Concomitant]
  6. DIOVANE [Concomitant]
  7. LAMICTAL [Concomitant]
  8. TRILEPTAL [Concomitant]
  9. KLONOPIN [Concomitant]
  10. LIPITOR [Concomitant]

REACTIONS (3)
  - CONVULSION [None]
  - HYPOGLYCAEMIA [None]
  - VOMITING [None]
